FAERS Safety Report 20684940 (Version 1)
Quarter: 2022Q2

REPORT INFORMATION
  Report Type: Report from Study
  Country: EG (occurrence: EG)
  Receive Date: 20220407
  Receipt Date: 20220407
  Transmission Date: 20220721
  Serious: Yes (Hospitalization, Other)
  Sender: FDA-Public Use
  Company Number: EG-002147023-NVSC2022EG072790

PATIENT

DRUGS (4)
  1. RUXOLITINIB [Suspect]
     Active Substance: RUXOLITINIB
     Indication: Chronic myeloid leukaemia
     Dosage: 30 MG (2 TABS OF JAKAVI 15 MG)
     Route: 048
     Dates: start: 20220226, end: 20220322
  2. RUXOLITINIB [Suspect]
     Active Substance: RUXOLITINIB
     Dosage: 40 MG (2 TABS OF JAKAVI 15 + 2 TABS OF JAKAVI 5 MG)
     Route: 048
     Dates: start: 20220312, end: 20220322
  3. FOLIC ACID [Concomitant]
     Active Substance: FOLIC ACID
     Indication: Chronic myeloid leukaemia
     Dosage: 1 DOSAGE FORM, QD (STARTED 2 YEARS AGO WITH THE DIAGNOSIS TILL NOW)
     Route: 048
  4. HYDROXYUREA [Concomitant]
     Active Substance: HYDROXYUREA
     Indication: Chronic myeloid leukaemia
     Dosage: 2 CAPS/DAY (STARTED 2 YEARS AGO WITH THE DIAGNOSIS TILL NOW)
     Route: 048

REACTIONS (5)
  - White blood cell count increased [Recovering/Resolving]
  - Haemoglobin decreased [Recovering/Resolving]
  - Platelet count decreased [Recovering/Resolving]
  - Off label use [Recovered/Resolved]
  - Splenomegaly [Not Recovered/Not Resolved]

NARRATIVE: CASE EVENT DATE: 20220226
